FAERS Safety Report 7784306-4 (Version None)
Quarter: 2011Q3

REPORT INFORMATION
  Report Type: 
  Country: None (occurrence: None)
  Receive Date: 20110928
  Receipt Date: 20110919
  Transmission Date: 20111222
  Serious: Yes (Other)
  Sender: FDA-Public Use
  Company Number: PHEH2011US02297

PATIENT
  Sex: Male
  Weight: 29.6 kg

DRUGS (3)
  1. EXJADE [Suspect]
     Indication: IRON OVERLOAD
     Dosage: 625 MG, QD
     Route: 048
     Dates: start: 20110306, end: 20110804
  2. FOLIC ACID [Concomitant]
     Indication: SICKLE CELL ANAEMIA
     Dosage: 1 MG, DAILY
     Route: 048
     Dates: start: 20110801
  3. EXJADE [Suspect]
     Dosage: 500 MG, DAILY
     Dates: start: 20110901

REACTIONS (3)
  - HEPATIC ENZYME INCREASED [None]
  - SCLERAL DISCOLOURATION [None]
  - ALANINE AMINOTRANSFERASE INCREASED [None]
